FAERS Safety Report 8614118-0 (Version None)
Quarter: 2012Q3

REPORT INFORMATION
  Report Type: 
  Country: None (occurrence: None)
  Receive Date: 20120823
  Receipt Date: 20120814
  Transmission Date: 20120928
  Serious: Yes (Hospitalization, Other)
  Sender: FDA-Public Use
  Company Number: US-BAYER-2012-081974

PATIENT
  Age: 30 Year
  Sex: Female

DRUGS (10)
  1. YASMIN [Suspect]
     Indication: PREMENSTRUAL SYNDROME
     Dosage: UNK
     Dates: start: 20010907, end: 20020816
  2. IBUPROFEN [Concomitant]
  3. LISINOPRIL [Concomitant]
     Dosage: UNK
     Dates: start: 20020809
  4. ZESTORETIC [Concomitant]
     Dosage: 20/12.5 QD
     Route: 048
     Dates: start: 20020718
  5. CELEXA [Concomitant]
     Dosage: 20 MG, QD
     Route: 048
     Dates: start: 20020718
  6. PREDNISONE TAB [Concomitant]
     Dosage: UNK
     Dates: start: 20020809
  7. YAZ [Suspect]
     Indication: PREMENSTRUAL SYNDROME
     Dosage: UNK
     Dates: start: 20010907, end: 20020816
  8. SULAR [Concomitant]
     Dosage: 10 MG, QD
     Route: 048
     Dates: start: 20020718
  9. ALEVE [Concomitant]
     Indication: PAIN IN EXTREMITY
     Dosage: UNK UNK, PRN
     Dates: start: 20020816
  10. LASIX [Concomitant]
     Indication: DIURETIC THERAPY
     Dosage: UNK
     Dates: start: 20020101

REACTIONS (12)
  - DEEP VEIN THROMBOSIS [None]
  - PAIN [None]
  - FEAR [None]
  - PULMONARY INFARCTION [None]
  - GENERAL PHYSICAL HEALTH DETERIORATION [None]
  - UTERINE PROLAPSE [None]
  - PULMONARY EMBOLISM [None]
  - OEDEMA PERIPHERAL [None]
  - THROMBOSIS [None]
  - INJURY [None]
  - THROMBOPHLEBITIS SUPERFICIAL [None]
  - ANXIETY [None]
